FAERS Safety Report 6961811-1 (Version None)
Quarter: 2010Q3

REPORT INFORMATION
  Report Type: 
  Country: None (occurrence: None)
  Receive Date: 20100901
  Receipt Date: 20100827
  Transmission Date: 20110219
  Serious: Yes (Death, Life-Threatening, Hospitalization, Disabling, Other)
  Sender: FDA-Public Use
  Company Number: JP-ABBOTT-10P-087-0658151-00

PATIENT
  Sex: Female
  Weight: 48 kg

DRUGS (25)
  1. KLARICID [Suspect]
     Indication: PEMPHIGOID
     Route: 048
     Dates: start: 20100701, end: 20100713
  2. KLARICID [Suspect]
     Indication: BACTERIAL INFECTION
     Route: 048
     Dates: start: 20100721, end: 20100723
  3. KLARICID [Suspect]
     Indication: PROPHYLAXIS
  4. HEPARIN SODIUM [Concomitant]
     Indication: DIALYSIS
     Route: 042
     Dates: start: 20100709, end: 20100709
  5. HEPARIN SODIUM [Concomitant]
     Indication: THROMBOSIS PROPHYLAXIS
     Route: 042
     Dates: start: 20100708, end: 20100708
  6. PREDONINE [Concomitant]
     Indication: PEMPHIGOID
     Dosage: 5MG-45MG/DAY: TAPER DOSAGE
     Route: 048
     Dates: start: 20080602
  7. GASTER D [Concomitant]
     Indication: PROPHYLAXIS AGAINST GASTROINTESTINAL ULCER
     Route: 048
     Dates: start: 20100326
  8. MUCOSTA [Concomitant]
     Indication: PROPHYLAXIS AGAINST GASTROINTESTINAL ULCER
     Route: 048
     Dates: start: 20080602
  9. ONEALFA [Concomitant]
     Indication: OSTEOPOROSIS PROPHYLAXIS
     Route: 048
     Dates: start: 20081020
  10. ALLELOCK [Concomitant]
     Indication: PRURITUS
     Route: 048
     Dates: start: 20080602
  11. ZYRTEC [Concomitant]
     Indication: PRURITUS
     Route: 048
     Dates: start: 20100614
  12. NICOTINAMIDE [Concomitant]
     Indication: PEMPHIGOID
     Dosage: FORM STRENGTH:10%, 2 IN 1 D, 100-200MG/D
     Route: 048
     Dates: start: 20100609
  13. MAGNESIUM OXIDE [Concomitant]
     Indication: CONSTIPATION
     Route: 048
     Dates: start: 20100318
  14. POLAPREZINC [Concomitant]
     Indication: MINERAL SUPPLEMENTATION
     Route: 048
     Dates: start: 20100512
  15. POLAPREZINC [Concomitant]
     Indication: GASTRIC DISORDER
  16. POLAPREZINC [Concomitant]
     Indication: PROPHYLAXIS
  17. BONALON [Concomitant]
     Indication: OSTEOPOROSIS PROPHYLAXIS
     Route: 048
     Dates: start: 20100714
  18. MINODRONIC ACID HYDRATE (BONOTEO) [Concomitant]
     Indication: OSTEOPOROSIS PROPHYLAXIS
     Route: 048
     Dates: start: 20100707
  19. FOSAMAC [Concomitant]
     Indication: OSTEOPOROSIS PROPHYLAXIS
     Route: 048
     Dates: start: 20080609, end: 20081020
  20. FOSAMAC [Concomitant]
     Route: 048
     Dates: start: 20100424, end: 20100706
  21. MINOCYCLINE HCL [Concomitant]
     Indication: PRODUCT USED FOR UNKNOWN INDICATION
     Dosage: 2 IN 1D,DISCONTINUED DUE TO PIGMENTATION
     Route: 048
     Dates: start: 20080609, end: 20090625
  22. MINOCYCLINE HCL [Concomitant]
     Dosage: 2 IN 1 D, DC' D DUE TO HEPATIC DISORDER
     Route: 048
     Dates: start: 20100318, end: 20100327
  23. ASCORBIC ACID [Concomitant]
     Indication: PIGMENTATION DISORDER
     Dosage: FORM STRENGTH: 25%, 3 IN 1D
     Route: 048
     Dates: start: 20090625, end: 20100203
  24. ASCORBIC ACID [Concomitant]
     Indication: DRUG THERAPY
  25. FUTHAN [Concomitant]
     Indication: PLASMAPHERESIS
     Dates: start: 20100713

REACTIONS (7)
  - ACIDOSIS [None]
  - CHEYNE-STOKES RESPIRATION [None]
  - DISSEMINATED INTRAVASCULAR COAGULATION [None]
  - HYPONATRAEMIA [None]
  - PLATELET COUNT DECREASED [None]
  - SHOCK [None]
  - STAPHYLOCOCCAL SEPSIS [None]
